FAERS Safety Report 5008142-7 (Version None)
Quarter: 2006Q2

REPORT INFORMATION
  Report Type: 
  Country: None (occurrence: None)
  Receive Date: 20060404
  Receipt Date: 20050830
  Transmission Date: 20061013
  Serious: Yes (Life-Threatening, Hospitalization, Other)
  Sender: FDA-Public Use
  Company Number: 2005122233

PATIENT
  Age: 25 Year
  Sex: Female

DRUGS (4)
  1. GEODON [Suspect]
     Indication: BIPOLAR DISORDER
     Dosage: 60 MG (60 MG) ORAL
     Route: 048
     Dates: start: 20050825
  2. ALL OTHER THERAUEPTIC PRODUCTS (ALL OTHER THERAPEUTIC PRODUCTS) [Concomitant]
  3. RISPERDAL [Concomitant]
  4. ZYPREXA [Concomitant]

REACTIONS (1)
  - CONVULSION [None]
